FAERS Safety Report 8238657-X (Version None)
Quarter: 2012Q1

REPORT INFORMATION
  Report Type: 
  Country: None (occurrence: None)
  Receive Date: 20120327
  Receipt Date: 20120323
  Transmission Date: 20120608
  Serious: Yes (Death)
  Sender: FDA-Public Use
  Company Number: FR-ASTRAZENECA-2012SE03354

PATIENT
  Age: 70 Year
  Sex: Male
  Weight: 75 kg

DRUGS (21)
  1. ESCITALOPRAM OXALATE [Concomitant]
     Indication: MAJOR DEPRESSION
     Dates: start: 20111101
  2. OXAZEPAM [Concomitant]
     Indication: AGITATION
     Dates: start: 20120108, end: 20120111
  3. OXAZEPAM [Concomitant]
     Dates: start: 20120112, end: 20120115
  4. IMOVANE [Concomitant]
     Indication: SLEEP DISORDER
     Dates: start: 20120108, end: 20120112
  5. FENOFIBRATE [Concomitant]
     Indication: THYMUS DISORDER
     Dates: start: 20120109, end: 20120115
  6. GAVISCON [Concomitant]
     Indication: GASTROINTESTINAL DISORDER
     Dates: start: 20120109, end: 20120115
  7. QUETIAPINE FUMARATE [Suspect]
     Route: 048
     Dates: start: 20111201
  8. OXAZEPAM [Concomitant]
     Dates: start: 20120112, end: 20120115
  9. QUETIAPINE FUMARATE [Suspect]
     Indication: BIPOLAR I DISORDER
     Route: 048
     Dates: start: 20120105
  10. OXAZEPAM [Concomitant]
     Dates: start: 20111213
  11. ATARAX [Concomitant]
     Indication: ANXIETY
     Dates: start: 20120108, end: 20120115
  12. ATARAX [Concomitant]
     Indication: AGITATION
     Dates: start: 20120108, end: 20120115
  13. ESCITALOPRAM OXALATE [Concomitant]
     Dates: start: 20120108, end: 20120109
  14. OXAZEPAM [Concomitant]
     Dates: start: 20111213
  15. ALFUZOSIN HCL [Concomitant]
     Dates: start: 20120109, end: 20120114
  16. OXAZEPAM [Concomitant]
     Indication: ANXIETY
     Dates: start: 20120108, end: 20120111
  17. IMOVANE [Concomitant]
     Dates: start: 20111213
  18. NEXIUM [Concomitant]
     Indication: GASTROINTESTINAL DISORDER
     Dates: start: 20120109, end: 20120115
  19. LOXAPINE HCL [Concomitant]
     Indication: ANXIETY
     Route: 048
     Dates: start: 20120109, end: 20120115
  20. LOXAPINE HCL [Concomitant]
     Indication: AGITATION
     Route: 048
     Dates: start: 20120109, end: 20120115
  21. TRIMEPRAZINE TARTRATE [Concomitant]
     Indication: SLEEP DISORDER
     Dates: start: 20120112, end: 20120115

REACTIONS (3)
  - SUICIDAL IDEATION [None]
  - COMPLETED SUICIDE [None]
  - SUICIDAL BEHAVIOUR [None]
